FAERS Safety Report 12293753 (Version 1)
Quarter: 2016Q2

REPORT INFORMATION
  Report Type: Report from Study
  Country: US (occurrence: US)
  Receive Date: 20160421
  Receipt Date: 20160421
  Transmission Date: 20160815
  Serious: Yes (Hospitalization)
  Sender: FDA-Public Use
  Company Number: US-BIOGEN-2014BI093908

PATIENT
  Sex: Female

DRUGS (3)
  1. TECFIDERA [Suspect]
     Active Substance: DIMETHYL FUMARATE
     Route: 048
     Dates: start: 20131122, end: 20140108
  2. TECFIDERA [Suspect]
     Active Substance: DIMETHYL FUMARATE
     Indication: MULTIPLE SCLEROSIS
     Route: 048
     Dates: start: 201312, end: 201405
  3. TECFIDERA [Suspect]
     Active Substance: DIMETHYL FUMARATE
     Route: 048
     Dates: start: 20131122, end: 20140118

REACTIONS (8)
  - Respiratory disorder [Not Recovered/Not Resolved]
  - Abdominal pain [Recovered/Resolved]
  - Oxygen saturation decreased [Recovered/Resolved]
  - Multiple sclerosis [Unknown]
  - Dysphagia [Recovered/Resolved]
  - Feeding disorder [Recovered/Resolved]
  - Pulmonary function test decreased [Recovered/Resolved]
  - Dyspnoea [Recovered/Resolved]
